FAERS Safety Report 6977339-9 (Version None)
Quarter: 2010Q3

REPORT INFORMATION
  Report Type: 
  Country: None (occurrence: None)
  Receive Date: 20100910
  Receipt Date: 20100903
  Transmission Date: 20110219
  Serious: Yes (Other)
  Sender: FDA-Public Use
  Company Number: PHHO2010AU11466

PATIENT
  Sex: Female
  Weight: 75.5 kg

DRUGS (2)
  1. EXFORGE [Suspect]
     Indication: HYPERTENSION
     Dosage: VALSARTAN 20MG + AMLODIPINE 5MG
     Route: 048
     Dates: start: 20100630, end: 20100713
  2. AMIODARONE HCL [Concomitant]

REACTIONS (10)
  - ATRIAL FIBRILLATION [None]
  - CARDIAC FAILURE [None]
  - DILATATION ATRIAL [None]
  - DISEASE PROGRESSION [None]
  - DYSPNOEA [None]
  - HYPERTENSION [None]
  - LOWER RESPIRATORY TRACT INFECTION [None]
  - MALAISE [None]
  - PULMONARY HYPERTENSION [None]
  - PULMONARY OEDEMA [None]
